FAERS Safety Report 5607668-2 (Version None)
Quarter: 2008Q1

REPORT INFORMATION
  Report Type: 
  Country: None (occurrence: None)
  Receive Date: 20080125
  Receipt Date: 20080114
  Transmission Date: 20080703
  Serious: Yes (Other)
  Sender: FDA-Public Use
  Company Number: GXKR2008NL00875

PATIENT
  Age: 27 Year
  Sex: Male
  Weight: 89 kg

DRUGS (4)
  1. OXAZEPAM SANDOZ (NGX)(OXAZEPAM) TABLET, 50MG [Suspect]
     Dosage: 0.5 DF, QID, ORAL
     Route: 048
     Dates: start: 20030316
  2. PAROXETINE HCL [Suspect]
     Dosage: 40 MG, QD, ORAL
     Route: 048
     Dates: start: 19970707
  3. RISPERIDONE [Suspect]
     Dosage: 1,5-6 MG, QD, ORAL; 0.5 MG, QD, ORAL
     Route: 048
     Dates: start: 20030316
  4. CANNABIS (CANNABIS, CANNABIS SATIVA) [Concomitant]

REACTIONS (4)
  - DRUG DEPENDENCE [None]
  - HALLUCINATION [None]
  - HYPERHIDROSIS [None]
  - PSYCHOMOTOR HYPERACTIVITY [None]
